FAERS Safety Report 7131308-7 (Version None)
Quarter: 2010Q4

REPORT INFORMATION
  Report Type: 
  Country: None (occurrence: None)
  Receive Date: 20101201
  Receipt Date: 20101119
  Transmission Date: 20110411
  Serious: Yes (Other)
  Sender: FDA-Public Use
  Company Number: GXKR2010FI13184

PATIENT
  Sex: Male

DRUGS (4)
  1. LINATIL (NGX) [Suspect]
     Indication: CARDIOVASCULAR DISORDER
     Dosage: UP TO 10 MG/DAY
     Route: 048
     Dates: start: 20060518, end: 20060726
  2. DIGOXIN [Concomitant]
     Dosage: UNK
     Dates: start: 20100101
  3. SPIRESIS [Concomitant]
     Dosage: 1 DF, QD
     Dates: start: 20030101
  4. HEPARIN ^LEO^ [Concomitant]
     Dosage: 0.8 ML, QD
     Dates: start: 20020101

REACTIONS (3)
  - BLOOD UREA INCREASED [None]
  - ENURESIS [None]
  - HEPATIC ENZYME INCREASED [None]
